FAERS Safety Report 25501571 (Version 2)
Quarter: 2025Q3

REPORT INFORMATION
  Report Type: Spontaneous
  Country: US (occurrence: US)
  Receive Date: 20250701
  Receipt Date: 20250721
  Transmission Date: 20251021
  Serious: No
  Sender: ELI LILLY AND COMPANY
  Company Number: US-ELI_LILLY_AND_COMPANY-US202506024717

PATIENT
  Age: 70 Year
  Sex: Female

DRUGS (1)
  1. EBGLYSS [Suspect]
     Active Substance: LEBRIKIZUMAB-LBKZ
     Indication: Product used for unknown indication
     Route: 065
     Dates: start: 20250624

REACTIONS (11)
  - Pneumonia [Unknown]
  - Cough [Unknown]
  - Headache [Unknown]
  - Eye irritation [Recovered/Resolved]
  - Nasal ulcer [Not Recovered/Not Resolved]
  - Dry eye [Unknown]
  - Nasal discomfort [Unknown]
  - Eye pain [Recovered/Resolved]
  - Oropharyngeal pain [Recovered/Resolved]
  - Nasal crusting [Unknown]
  - Throat irritation [Recovered/Resolved]

NARRATIVE: CASE EVENT DATE: 20250624
